FAERS Safety Report 12794922 (Version 1)
Quarter: 2016Q3

REPORT INFORMATION
  Report Type: Spontaneous
  Country: US (occurrence: US)
  Receive Date: 20160929
  Receipt Date: 20160929
  Transmission Date: 20161109
  Serious: Yes (Hospitalization)
  Sender: FDA-Public Use
  Company Number: US-UNITED THERAPEUTICS-UNT-2016-015158

PATIENT
  Sex: Female

DRUGS (1)
  1. REMODULIN [Suspect]
     Active Substance: TREPROSTINIL
     Indication: PULMONARY ARTERIAL HYPERTENSION
     Dosage: 0.049 ?G/KG , CONTINUING
     Route: 041
     Dates: start: 20160911

REACTIONS (3)
  - Hypoxia [Unknown]
  - Pulmonary embolism [Unknown]
  - Infection [Unknown]

NARRATIVE: CASE EVENT DATE: 20160923
